FAERS Safety Report 8479348 (Version 2)
Quarter: 2012Q4

REPORT INFORMATION
  Report Type: 
  Country: BR (occurrence: BR)
  Receive Date: 20120328
  Receipt Date: 20121218
  Transmission Date: 20130627
  Serious: Yes (Other)
  Sender: FDA-Public Use
  Company Number: BR-AMGEN-BRASP2012018073

PATIENT
  Age: 45 Year
  Sex: Female
  Weight: 70 kg

DRUGS (7)
  1. ENBREL [Suspect]
     Indication: RHEUMATOID ARTHRITIS
     Dosage: 50 mg, once weekly
     Route: 058
     Dates: start: 201112
  2. ENBREL [Suspect]
     Dosage: 50 mg, every 8 days
     Dates: start: 201112
  3. PRELONE [Concomitant]
     Indication: RHEUMATOID ARTHRITIS
     Dosage: 10 mg, 1x/day
  4. PRELONE [Concomitant]
     Dosage: 5 mg, 1x/day (in the morning)
  5. TECNOMET                           /00113801/ [Concomitant]
     Indication: RHEUMATOID ARTHRITIS
     Dosage: 1.25 mg, 1x/day
  6. TECNOMET                           /00113801/ [Concomitant]
     Dosage: 2 tablets (2.5mg each) on Friday mornings, on Friday nights and on Saturday mornings.
  7. REUQUINOL [Concomitant]
     Dosage: 200 mg, 1x/day

REACTIONS (10)
  - Lip dry [Not Recovered/Not Resolved]
  - Nasal congestion [Not Recovered/Not Resolved]
  - Sneezing [Unknown]
  - Dyspnoea [Not Recovered/Not Resolved]
  - Application site erythema [Unknown]
  - Application site swelling [Unknown]
  - Application site pruritus [Unknown]
  - Rhinitis [Not Recovered/Not Resolved]
  - Pneumonia [Not Recovered/Not Resolved]
  - Influenza [Unknown]
